FAERS Safety Report 10334114 (Version 1)
Quarter: 2014Q3

REPORT INFORMATION
  Report Type: Spontaneous
  Country: US (occurrence: None)
  Receive Date: 20140721
  Receipt Date: 20140721
  Transmission Date: 20150326
  Serious: No
  Sender: FDA-Public Use
  Company Number: None

PATIENT
  Age: 34 Year
  Sex: Female
  Weight: 90.72 kg

DRUGS (1)
  1. PREDNISONE. [Suspect]
     Active Substance: PREDNISONE
     Indication: MIGRAINE
     Dosage: DAY 1-5 PILLS   1ST DAY 6 TABLETS,  TAKEN BY MOUTH
     Route: 048
     Dates: start: 20140717, end: 20140719

REACTIONS (6)
  - Insomnia [None]
  - Nervousness [None]
  - Pollakiuria [None]
  - Hyperhidrosis [None]
  - Nipple disorder [None]
  - Menstruation delayed [None]

NARRATIVE: CASE EVENT DATE: 20140717
